FAERS Safety Report 8174349-3 (Version None)
Quarter: 2012Q1

REPORT INFORMATION
  Report Type: 
  Country: None (occurrence: None)
  Receive Date: 20120229
  Receipt Date: 20120228
  Transmission Date: 20120608
  Serious: Yes (Other)
  Sender: FDA-Public Use
  Company Number: US-JNJFOC-20070404523

PATIENT
  Age: 58 Year
  Sex: Female
  Weight: 81.65 kg

DRUGS (11)
  1. GLUCONORM [Concomitant]
     Indication: DIABETES MELLITUS
     Route: 048
  2. CALCIUM [Concomitant]
     Indication: OSTEOPOROSIS
     Dates: start: 19970101
  3. ASPIRIN [Concomitant]
     Indication: GASTRIC DISORDER
     Route: 048
     Dates: start: 19970101
  4. ACEBUTOLOL [Concomitant]
     Indication: CARDIAC DISORDER
     Route: 048
     Dates: start: 19970101
  5. RAMIPRIL [Concomitant]
     Indication: CARDIAC DISORDER
     Route: 048
     Dates: start: 19920101
  6. TYLENOL W/ CODEINE [Suspect]
     Indication: PAIN
     Dates: start: 20070401, end: 20070401
  7. NICODERM [Suspect]
     Indication: SMOKING CESSATION THERAPY
     Route: 062
     Dates: start: 20070401, end: 20070407
  8. METAMUCIL-2 [Concomitant]
     Indication: IRRITABLE BOWEL SYNDROME
  9. SEROQUEL [Concomitant]
     Indication: NERVOUS SYSTEM DISORDER
  10. TYLENOL-500 [Concomitant]
     Indication: ARTHRITIS
  11. MAGELLAN [Concomitant]
     Indication: IRRITABLE BOWEL SYNDROME

REACTIONS (3)
  - IRRITABILITY [None]
  - DYSSTASIA [None]
  - TREMOR [None]
